FAERS Safety Report 9109365 (Version 1)
Quarter: 2013Q1

REPORT INFORMATION
  Report Type: Report from Study
  Country: US (occurrence: US)
  Receive Date: 20130222
  Receipt Date: 20130222
  Transmission Date: 20140127
  Serious: Yes (Other)
  Sender: FDA-Public Use
  Company Number: US-SANOFI-AVENTIS-2013SA014714

PATIENT
  Sex: Male

DRUGS (18)
  1. JEVTANA [Suspect]
     Indication: PROSTATE CANCER METASTATIC
     Dosage: EVERY 3 WEEKS
     Route: 041
     Dates: start: 20121231, end: 20121231
  2. CARBOPLATIN [Suspect]
     Indication: PROSTATE CANCER METASTATIC
     Dosage: EVERY 3 WEEKS
     Route: 042
     Dates: start: 20121231, end: 20121231
  3. ALLOPURINOL [Concomitant]
     Indication: GOUT
     Route: 048
     Dates: start: 200406
  4. ASPIRIN [Concomitant]
     Indication: CARDIOVASCULAR EVENT PROPHYLAXIS
     Route: 048
     Dates: start: 201111
  5. ATENOLOL [Concomitant]
     Indication: BLOOD PRESSURE
     Route: 048
     Dates: start: 200908
  6. CALTRATE +D [Concomitant]
     Indication: SUPPLEMENTATION THERAPY
     Route: 048
     Dates: start: 201111
  7. CRESTOR [Concomitant]
     Indication: HYPERCHOLESTEROLAEMIA
     Route: 048
     Dates: start: 200406
  8. HYDROCODONE W/APAP [Concomitant]
     Indication: PAIN
     Dosage: 1 TO 2 TABLETS 10/325 MG ORALLY EVERY 6 HOURS AS NEEDED FOR PAIN
     Route: 048
     Dates: start: 201111
  9. LEVOTHYROXINE [Concomitant]
     Indication: HYPOTHYROIDISM
     Route: 048
     Dates: start: 200804
  10. LEXAPRO [Concomitant]
     Indication: DEPRESSION
     Route: 048
     Dates: start: 201111
  11. LUPRON [Concomitant]
     Indication: PROSTATE CANCER
     Dosage: 30 MG EVERY 4 MONTHS
     Route: 030
     Dates: start: 200305
  12. NEURONTIN [Concomitant]
     Dosage: 100 MG IN THE MORNING AND 200 MG IN THE EVENING
     Route: 048
     Dates: start: 201111
  13. POTASSIUM [Concomitant]
     Indication: HYPOKALAEMIA
     Route: 048
     Dates: start: 201209
  14. PREDNISONE [Concomitant]
     Indication: ADVERSE DRUG REACTION
     Route: 048
     Dates: start: 20121217
  15. PROTONIX [Concomitant]
     Indication: GASTROOESOPHAGEAL REFLUX DISEASE
     Route: 048
     Dates: start: 201111
  16. SENOKOT-S [Concomitant]
     Indication: CONSTIPATION
     Route: 048
     Dates: start: 201111
  17. XGEVA [Concomitant]
     Indication: BONE DISORDER
     Route: 058
     Dates: start: 201201
  18. ZETIA [Concomitant]
     Indication: HYPERCHOLESTEROLAEMIA
     Route: 048
     Dates: start: 200406

REACTIONS (1)
  - Syncope [Recovered/Resolved]
